FAERS Safety Report 22367089 (Version 1)
Quarter: 2023Q2

REPORT INFORMATION
  Report Type: Spontaneous
  Country: US (occurrence: None)
  Receive Date: 20230525
  Receipt Date: 20230525
  Transmission Date: 20230722
  Serious: No
  Sender: FDA-Public Use
  Company Number: None

PATIENT
  Age: 56 Year
  Sex: Female

DRUGS (2)
  1. IMIQUIMOD [Suspect]
     Active Substance: IMIQUIMOD
     Indication: Precancerous skin lesion
     Dosage: OTHER QUANTITY : 24 24?.25G PACKETS;?OTHER FREQUENCY : THREE TIMESX 4 WKS;?
     Route: 062
     Dates: start: 20230323, end: 20230323
  2. VITAMINS [Concomitant]
     Active Substance: VITAMINS

REACTIONS (4)
  - Lacrimation increased [None]
  - Sneezing [None]
  - Sinonasal obstruction [None]
  - Dyspnoea [None]

NARRATIVE: CASE EVENT DATE: 20230323
